FAERS Safety Report 20587036 (Version 4)
Quarter: 2022Q2

REPORT INFORMATION
  Report Type: Spontaneous
  Country: US (occurrence: US)
  Receive Date: 20220314
  Receipt Date: 20220520
  Transmission Date: 20220720
  Serious: No
  Sender: FDA-Public Use
  Company Number: US-SA-SAC20220310000706

PATIENT
  Age: 61 Year
  Sex: Female

DRUGS (13)
  1. DUPIXENT [Suspect]
     Active Substance: DUPILUMAB
     Indication: Dermatitis
     Dosage: 600 MG, 1X-
     Route: 058
     Dates: start: 20220301, end: 20220301
  2. DUPIXENT [Suspect]
     Active Substance: DUPILUMAB
     Dosage: 300 MG, QOW
     Route: 058
  3. ROGAINE [Concomitant]
     Active Substance: MINOXIDIL
  4. TRIAMCINOLONE ACETONIDE [Concomitant]
     Active Substance: TRIAMCINOLONE ACETONIDE
  5. CLOBETASOL [Concomitant]
     Active Substance: CLOBETASOL
  6. PEPCID [Concomitant]
     Active Substance: FAMOTIDINE
     Dosage: UNK MG
  7. AMLODIPINE BESYLATE [Concomitant]
     Active Substance: AMLODIPINE BESYLATE
  8. VITAMIN D3 [Concomitant]
     Active Substance: CHOLECALCIFEROL
  9. ZETIA [Concomitant]
     Active Substance: EZETIMIBE
  10. LEVOTHYROXINE [Concomitant]
     Active Substance: LEVOTHYROXINE
  11. B12 ACTIVE [Concomitant]
  12. MODERNA COVID-19 VACCINE [Concomitant]
     Active Substance: ELASOMERAN
  13. VACUNA COVID-19 PFIZER BIONTECH [Concomitant]

REACTIONS (5)
  - Muscle spasms [Unknown]
  - Conjunctivitis [Recovered/Resolved]
  - Eye pruritus [Recovered/Resolved]
  - Dry eye [Recovered/Resolved]
  - Product use in unapproved indication [Unknown]

NARRATIVE: CASE EVENT DATE: 20220301
